FAERS Safety Report 24978832 (Version 1)
Quarter: 2025Q1

REPORT INFORMATION
  Report Type: Spontaneous
  Country: US (occurrence: US)
  Receive Date: 20250218
  Receipt Date: 20250218
  Transmission Date: 20250409
  Serious: Yes (Other)
  Sender: MALLINCKRODT
  Company Number: US-MALLINCKRODT-MNK202500682

PATIENT
  Sex: Female
  Weight: 54 kg

DRUGS (9)
  1. CORTICOTROPIN [Suspect]
     Active Substance: CORTICOTROPIN
     Indication: Multiple sclerosis
     Route: 030
     Dates: start: 20230113
  2. SERTRALINE [Concomitant]
     Active Substance: SERTRALINE HYDROCHLORIDE
  3. NAPROXEN [Concomitant]
     Active Substance: NAPROXEN
  4. ALPRAZOLAM [Concomitant]
     Active Substance: ALPRAZOLAM
  5. LEVETIRACETAM [Concomitant]
     Active Substance: LEVETIRACETAM
  6. AZITHROMYCIN [Concomitant]
     Active Substance: AZITHROMYCIN
  7. AMOXICILLIN [Concomitant]
     Active Substance: AMOXICILLIN
  8. GABAPENTIN [Concomitant]
     Active Substance: GABAPENTIN
  9. LISINOPRIL [Concomitant]
     Active Substance: LISINOPRIL

REACTIONS (3)
  - Illness [Not Recovered/Not Resolved]
  - Adverse drug reaction [Not Recovered/Not Resolved]
  - Drug ineffective [Not Recovered/Not Resolved]
